FAERS Safety Report 11338629 (Version 1)
Quarter: 2015Q3

REPORT INFORMATION
  Report Type: Spontaneous
  Country: US (occurrence: US)
  Receive Date: 20150803
  Receipt Date: 20150803
  Transmission Date: 20151125
  Serious: No
  Sender: FDA-Public Use
  Company Number: US-ELI_LILLY_AND_COMPANY-US200801002189

PATIENT
  Age: 56 Year
  Sex: Female

DRUGS (2)
  1. STRATTERA [Suspect]
     Active Substance: ATOMOXETINE HYDROCHLORIDE
     Dosage: 18 MG, DAILY (1/D)
  2. STRATTERA [Suspect]
     Active Substance: ATOMOXETINE HYDROCHLORIDE
     Dosage: 43 MG, DAILY (1/D)
     Dates: start: 2007

REACTIONS (4)
  - Dizziness [Unknown]
  - Somnolence [Unknown]
  - Presyncope [Unknown]
  - Headache [Unknown]

NARRATIVE: CASE EVENT DATE: 20080110
